FAERS Safety Report 7970375-5 (Version None)
Quarter: 2011Q4

REPORT INFORMATION
  Report Type: 
  Country: None (occurrence: None)
  Receive Date: 20111212
  Receipt Date: 20111206
  Transmission Date: 20120403
  Serious: Yes (Other)
  Sender: FDA-Public Use
  Company Number: IR-BAYER-2011-117662

PATIENT
  Age: 40 Year
  Sex: Female

DRUGS (1)
  1. INTERFERON BETA-1B [Suspect]
     Indication: MULTIPLE SCLEROSIS
     Dosage: UNK UNK, QOD
     Dates: start: 20050101, end: 20071201

REACTIONS (5)
  - EYELID PTOSIS [None]
  - MUSCULAR WEAKNESS [None]
  - DIPLOPIA [None]
  - MYASTHENIA GRAVIS [None]
  - FATIGUE [None]
